FAERS Safety Report 7195234 (Version 2)
Quarter: 2012Q4

REPORT INFORMATION
  Report Type: Report from Study
  Country: AT (occurrence: AT)
  Receive Date: 20091201
  Receipt Date: 20121203
  Transmission Date: 20130627
  Serious: Yes (Hospitalization)
  Sender: FDA-Public Use
  Company Number: AT-CELGENEUS-009-21880-09111437

PATIENT
  Age: 71 Year
  Sex: Male
  Weight: 80 kg

DRUGS (20)
  1. REVLIMID [Suspect]
     Indication: CLL
     Dosage: 5 Milligram
     Route: 048
     Dates: start: 20091116, end: 20091116
  2. REVLIMID [Suspect]
     Dosage: 2.5 Milligram
     Route: 048
     Dates: start: 20090727
  3. FLUDARABINE [Suspect]
     Indication: CLL
     Dosage: 46 Milligram
     Route: 041
     Dates: start: 20091113
  4. FLUDARABINE [Suspect]
     Dosage: 46 Milligram
     Route: 041
     Dates: start: 20090722
  5. RITUXIMAB [Suspect]
     Indication: CLL
     Dosage: 920 Milligram
     Route: 041
     Dates: start: 20091111
  6. RITUXIMAB [Suspect]
     Dosage: 690 Milligram
     Route: 041
     Dates: start: 20090727
  7. PLAVIX [Concomitant]
     Indication: DRUG USE FOR UNKNOWN INDICATION
     Dosage: 25 Milligram
     Route: 065
  8. PANTALOC [Concomitant]
     Indication: DRUG USE FOR UNKNOWN INDICATION
     Dosage: 40 Milligram
     Route: 065
  9. THYREX [Concomitant]
     Indication: DRUG USE FOR UNKNOWN INDICATION
     Dosage: .1 Milligram
     Route: 065
  10. MONOKET [Concomitant]
     Indication: DRUG USE FOR UNKNOWN INDICATION
     Dosage: 50 Milligram
     Route: 065
  11. DILDIAZEMRET [Concomitant]
     Indication: DRUG USE FOR UNKNOWN INDICATION
     Dosage: 20 Milligram
     Route: 065
  12. MOLSIDOLAT [Concomitant]
     Indication: DRUG USE FOR UNKNOWN INDICATION
     Dosage: 4 Milligram
     Route: 065
     Dates: start: 20090919, end: 20091113
  13. TERBINAFIN [Concomitant]
     Indication: DRUG USE FOR UNKNOWN INDICATION
     Route: 065
     Dates: start: 20091112, end: 20091118
  14. LOVENOX [Concomitant]
     Indication: DRUG USE FOR UNKNOWN INDICATION
     Dosage: 40 Milligram
     Route: 058
     Dates: start: 20091113, end: 20091119
  15. VENLAFAXINE [Concomitant]
     Indication: DRUG USE FOR UNKNOWN INDICATION
     Route: 065
  16. MEXALEN [Concomitant]
     Indication: DRUG USE FOR UNKNOWN INDICATION
     Route: 065
  17. COTRIBENE [Concomitant]
     Indication: BACTERAEMIA
     Route: 048
     Dates: start: 2009
  18. TAVANIC [Concomitant]
     Indication: BACTERAEMIA
     Route: 048
     Dates: start: 2009
  19. CLAVAMOX [Concomitant]
     Indication: BACTERAEMIA
     Route: 048
     Dates: start: 2009
  20. AVELOX [Concomitant]
     Indication: BACTERAEMIA
     Route: 048
     Dates: start: 2009

REACTIONS (1)
  - Tumour flare [Recovered/Resolved]
